FAERS Safety Report 7508180-6 (Version None)
Quarter: 2011Q2

REPORT INFORMATION
  Report Type: 
  Country: None (occurrence: None)
  Receive Date: 20110519
  Receipt Date: 20110505
  Transmission Date: 20111010
  Serious: Yes (Death, Hospitalization, Other)
  Sender: FDA-Public Use
  Company Number: 2011MA005459

PATIENT
  Age: 50 Year
  Sex: Male

DRUGS (1)
  1. LORAZEPAM [Suspect]
     Indication: CONVULSION
     Dosage: 2 MG/MIN; IV
     Route: 042

REACTIONS (11)
  - LACTIC ACIDOSIS [None]
  - HAEMODIALYSIS [None]
  - TOXICITY TO VARIOUS AGENTS [None]
  - OVERDOSE [None]
  - DRUG ADMINISTRATION ERROR [None]
  - CHOKING [None]
  - CARDIAC ARREST [None]
  - IATROGENIC INJURY [None]
  - HYPOXIC-ISCHAEMIC ENCEPHALOPATHY [None]
  - PULSELESS ELECTRICAL ACTIVITY [None]
  - VENTRICULAR FIBRILLATION [None]
